FAERS Safety Report 4928407-4 (Version None)
Quarter: 2006Q1

REPORT INFORMATION
  Report Type: 
  Country: None (occurrence: None)
  Receive Date: 20060228
  Receipt Date: 20050602
  Transmission Date: 20060701
  Serious: Yes (Hospitalization, Other)
  Sender: FDA-Public Use
  Company Number: US-MERCK-0506USA00735

PATIENT
  Age: 46 Year
  Sex: Female
  Weight: 66 kg

DRUGS (5)
  1. VIOXX [Suspect]
     Route: 048
  2. PLAQUENIL [Concomitant]
     Route: 065
  3. RELAFEN [Concomitant]
     Route: 065
  4. PREDNISONE [Concomitant]
     Route: 065
  5. ARAVA [Concomitant]
     Route: 065

REACTIONS (26)
  - ABDOMINAL PAIN [None]
  - ACTIVATED PARTIAL THROMBOPLASTIN TIME PROLONGED [None]
  - ANOREXIA [None]
  - CELLULITIS [None]
  - CEREBROVASCULAR ACCIDENT [None]
  - CORONARY ARTERY DISEASE [None]
  - COUGH [None]
  - DEHYDRATION [None]
  - DEPRESSED MOOD [None]
  - DIARRHOEA [None]
  - DRUG ERUPTION [None]
  - GASTROOESOPHAGEAL REFLUX DISEASE [None]
  - HAEMORRHAGE INTRACRANIAL [None]
  - HYPERGLYCAEMIA [None]
  - HYPERTENSION [None]
  - HYPOKALAEMIA [None]
  - MENINGIOMA [None]
  - MIGRAINE [None]
  - MYOCARDIAL INFARCTION [None]
  - PARTIAL SEIZURES [None]
  - PERIPHERAL ISCHAEMIA [None]
  - PERIPHERAL VASCULAR DISORDER [None]
  - RENAL FAILURE ACUTE [None]
  - STAPHYLOCOCCAL INFECTION [None]
  - TOE AMPUTATION [None]
  - VISION BLURRED [None]
